FAERS Safety Report 5073598-0 (Version None)
Quarter: 2006Q3

REPORT INFORMATION
  Report Type: 
  Country: None (occurrence: None)
  Receive Date: 20060808
  Receipt Date: 20060802
  Transmission Date: 20061208
  Serious: Yes (Other)
  Sender: FDA-Public Use
  Company Number: US-GLAXOSMITHKLINE-A0615631A

PATIENT
  Age: 42 Year
  Sex: Female

DRUGS (4)
  1. LAMOTRIGINE [Suspect]
     Indication: BIPOLAR DISORDER
     Dosage: 100MG PER DAY
     Route: 048
     Dates: start: 20040101
  2. BUPROPION HCL [Suspect]
     Dosage: 200MG PER DAY
     Route: 048
     Dates: start: 20020201
  3. PAXIL [Concomitant]
     Dosage: 37.5MG PER DAY
  4. KLONOPIN [Concomitant]

REACTIONS (5)
  - GESTATIONAL DIABETES [None]
  - NORMAL NEWBORN [None]
  - PRE-ECLAMPSIA [None]
  - PREMATURE LABOUR [None]
  - PREMATURE SEPARATION OF PLACENTA [None]
